FAERS Safety Report 8019987-3 (Version None)
Quarter: 2012Q1

REPORT INFORMATION
  Report Type: 
  Country: None (occurrence: None)
  Receive Date: 20120103
  Receipt Date: 20111227
  Transmission Date: 20120608
  Serious: Yes (Hospitalization, Other)
  Sender: FDA-Public Use
  Company Number: GR-JNJFOC-20090501106

PATIENT
  Age: 32 Year
  Sex: Male

DRUGS (3)
  1. INFLIXIMAB [Suspect]
     Indication: CROHN'S DISEASE
     Dosage: RECEIVED 3 INDUCTION DOSES
     Route: 042
  2. METHYLPREDNISOLONE [Concomitant]
     Indication: CROHN'S DISEASE
  3. METHYLPREDNISOLONE [Concomitant]
     Dosage: GIVEN DURING FLARES AND TAPERED WITHIN A 3 MONTH PERIOD

REACTIONS (3)
  - OPTIC NEURITIS [None]
  - URINARY INCONTINENCE [None]
  - MULTIPLE SCLEROSIS [None]
